FAERS Safety Report 18717002 (Version 7)
Quarter: 2021Q3

REPORT INFORMATION
  Report Type: Spontaneous
  Country: US (occurrence: US)
  Receive Date: 20210108
  Receipt Date: 20210928
  Transmission Date: 20211014
  Serious: Yes (Other)
  Sender: FDA-Public Use
  Company Number: US-PFIZER INC-2021001433

PATIENT
  Age: 59 Year
  Sex: Female
  Weight: 115.21 kg

DRUGS (6)
  1. XELJANZ XR [Suspect]
     Active Substance: TOFACITINIB CITRATE
     Indication: RHEUMATOID ARTHRITIS
     Dosage: 11 MG, 1X/DAY
     Route: 048
     Dates: start: 2020
  2. FUROSEMIDE. [Concomitant]
     Active Substance: FUROSEMIDE
     Indication: POLYURIA
     Dosage: 20 MG, 1X/DAY
     Dates: start: 201908
  3. LISINOPRIL. [Concomitant]
     Active Substance: LISINOPRIL
     Indication: BLOOD PRESSURE ABNORMAL
     Dosage: 20 MG, DAILY
  4. FUROSEMIDE. [Concomitant]
     Active Substance: FUROSEMIDE
     Indication: INFLAMMATION
  5. MELOXICAM. [Concomitant]
     Active Substance: MELOXICAM
     Indication: INFLAMMATION
     Dosage: 15 MG, 1X/DAY
     Dates: start: 202009
  6. XELJANZ XR [Suspect]
     Active Substance: TOFACITINIB CITRATE
     Dosage: 11 MG, UNK
     Dates: start: 20210827

REACTIONS (9)
  - Pain [Unknown]
  - Pain in extremity [Recovering/Resolving]
  - Arthralgia [Recovering/Resolving]
  - Inflammation [Unknown]
  - Peripheral swelling [Unknown]
  - Arthralgia [Unknown]
  - Exostosis [Unknown]
  - Back disorder [Not Recovered/Not Resolved]
  - Sensitivity to weather change [Recovering/Resolving]

NARRATIVE: CASE EVENT DATE: 202012
